FAERS Safety Report 6687951-2 (Version None)
Quarter: 2010Q2

REPORT INFORMATION
  Report Type: 
  Country: None (occurrence: None)
  Receive Date: 20100420
  Receipt Date: 20100412
  Transmission Date: 20101027
  Serious: Yes (Other)
  Sender: FDA-Public Use
  Company Number: US-JNJFOC-20100111100

PATIENT
  Sex: Male
  Weight: 83.01 kg

DRUGS (10)
  1. LEVAQUIN [Suspect]
     Indication: EAR INFECTION
     Route: 065
     Dates: start: 20100118, end: 20100122
  2. LEVAQUIN [Suspect]
     Route: 065
     Dates: start: 20100118, end: 20100122
  3. LEVAQUIN [Suspect]
     Indication: SINUSITIS
     Route: 065
     Dates: start: 20100118, end: 20100122
  4. LEVAQUIN [Suspect]
     Route: 065
     Dates: start: 20100118, end: 20100122
  5. METFORMIN HCL [Concomitant]
     Indication: DIABETES MELLITUS
     Route: 048
     Dates: start: 20091201
  6. ZYLOL [Concomitant]
     Indication: ANXIETY
     Route: 048
     Dates: start: 20091218
  7. ZYLOL [Concomitant]
     Indication: DEPRESSION
     Route: 048
     Dates: start: 20091218
  8. CRESTOR [Concomitant]
     Indication: BLOOD CHOLESTEROL
     Route: 048
     Dates: start: 20091228
  9. MUCINEX [Concomitant]
     Route: 065
  10. PHENERGAN EXPECTORANT W/ CODEINE [Concomitant]
     Route: 065

REACTIONS (5)
  - CONTUSION [None]
  - DIARRHOEA [None]
  - EPISTAXIS [None]
  - ERYTHEMA [None]
  - HAEMOPTYSIS [None]
